FAERS Safety Report 4557597-0 (Version None)
Quarter: 2005Q1

REPORT INFORMATION
  Report Type: 
  Country: None (occurrence: None)
  Receive Date: 20050103
  Receipt Date: 20040827
  Transmission Date: 20050727
  Serious: Yes (Other)
  Sender: FDA-Public Use
  Company Number: 2004UW18232

PATIENT
  Age: 49 Year
  Sex: Female
  Weight: 68.0396 kg

DRUGS (5)
  1. CRESTOR [Suspect]
     Indication: HYPERCHOLESTEROLAEMIA
     Dosage: 10 MG PO
     Route: 048
     Dates: start: 20040101, end: 20040818
  2. MULTI-VITAMINS [Concomitant]
  3. ASPIRIN [Concomitant]
  4. BEXTRA [Concomitant]
  5. PROVERA [Concomitant]

REACTIONS (2)
  - MUSCLE SPASMS [None]
  - SCIATICA [None]
